FAERS Safety Report 5218682-3 (Version None)
Quarter: 2007Q1

REPORT INFORMATION
  Report Type: 
  Country: None (occurrence: None)
  Receive Date: 20070122
  Receipt Date: 20070111
  Transmission Date: 20070707
  Serious: Yes (Hospitalization, Other)
  Sender: FDA-Public Use
  Company Number: 2002-01-0468

PATIENT
  Age: 47 Year
  Sex: Male
  Weight: 86.1834 kg

DRUGS (5)
  1. REBETOL [Suspect]
     Indication: HEPATITIS C
     Dosage: 1200 MG;QD;PO
     Route: 048
     Dates: start: 19990118, end: 20010701
  2. INTRON A [Suspect]
     Indication: HEPATITIS C
     Dosage: 3 MIU;TIW;SC
     Route: 058
     Dates: start: 19990118, end: 20010701
  3. CENTRUM [Concomitant]
  4. MARINOL [Concomitant]
  5. CYCLOBENZAPRINE HCL [Concomitant]

REACTIONS (15)
  - AFFECT LABILITY [None]
  - ANXIETY [None]
  - ASTHENIA [None]
  - DENTAL CARIES [None]
  - DEPRESSION [None]
  - DISTURBANCE IN ATTENTION [None]
  - DRY MOUTH [None]
  - IMPAIRED WORK ABILITY [None]
  - INFLUENZA LIKE ILLNESS [None]
  - LETHARGY [None]
  - PERIODONTAL DISEASE [None]
  - PSYCHOTIC DISORDER [None]
  - SALIVA ALTERED [None]
  - SUICIDAL IDEATION [None]
  - TOOTH FRACTURE [None]
